FAERS Safety Report 4966506-1 (Version None)
Quarter: 2006Q2

REPORT INFORMATION
  Report Type: 
  Country: None (occurrence: None)
  Receive Date: 20060407
  Receipt Date: 20060329
  Transmission Date: 20061013
  Serious: Yes (Hospitalization)
  Sender: FDA-Public Use
  Company Number: US-JNJFOC-20060307275

PATIENT
  Age: 40 Year
  Sex: Male

DRUGS (10)
  1. TYLENOL (CAPLET) [Suspect]
  2. TYLENOL (CAPLET) [Suspect]
     Indication: DRUG USE FOR UNKNOWN INDICATION
     Dosage: 2 PILLS EVERY THREE HOURS
  3. TAMIFLU [Suspect]
  4. TAMIFLU [Suspect]
     Indication: NECK PAIN
  5. TAMIFLU [Suspect]
     Indication: BACK PAIN
  6. TAMIFLU [Suspect]
     Indication: MYALGIA
  7. TAMIFLU [Suspect]
     Indication: BRONCHITIS
  8. TAMIFLU [Suspect]
     Indication: COUGH
  9. TAMIFLU [Suspect]
  10. MOTRIN [Concomitant]
     Dosage: 2 PILL EVERY THREE HOURS

REACTIONS (15)
  - ANOXIA [None]
  - ATELECTASIS [None]
  - DYSPNOEA [None]
  - HALLUCINATION [None]
  - HEPATOTOXICITY [None]
  - HYPERSENSITIVITY [None]
  - HYPOAESTHESIA [None]
  - INCORRECT DRUG ADMINISTRATION DURATION [None]
  - INFLUENZA LIKE ILLNESS [None]
  - MENTAL IMPAIRMENT [None]
  - PARAESTHESIA [None]
  - PLEURAL EFFUSION [None]
  - PLEURITIC PAIN [None]
  - SPLENOMEGALY [None]
  - URINE OUTPUT INCREASED [None]
